FAERS Safety Report 14530405 (Version 3)
Quarter: 2018Q4

REPORT INFORMATION
  Report Type: Spontaneous
  Country: US (occurrence: US)
  Receive Date: 20180214
  Receipt Date: 20181017
  Transmission Date: 20190204
  Serious: Yes (Other)
  Sender: FDA-Public Use
  Company Number: US-GLAXOSMITHKLINE-US2018024306

PATIENT
  Age: 71 Year
  Sex: Female

DRUGS (3)
  1. SYMBICORT [Suspect]
     Active Substance: BUDESONIDE\FORMOTEROL FUMARATE DIHYDRATE
     Indication: COUGH
     Dosage: UNK, QD
     Route: 042
  2. BENLYSTA [Suspect]
     Active Substance: BELIMUMAB
     Indication: PRODUCT USED FOR UNKNOWN INDICATION
     Dosage: 10 MG, CYC
     Route: 042
     Dates: start: 20170924
  3. ALBUTEROL. [Suspect]
     Active Substance: ALBUTEROL
     Indication: COUGH
     Dosage: UNK, TID

REACTIONS (17)
  - Limb injury [Unknown]
  - Knee arthroplasty [Unknown]
  - Musculoskeletal stiffness [Not Recovered/Not Resolved]
  - Condition aggravated [Unknown]
  - Lower respiratory tract congestion [Unknown]
  - Drug ineffective [Unknown]
  - Headache [Recovered/Resolved]
  - Walking aid user [Unknown]
  - Exercise tolerance decreased [Unknown]
  - Pain in extremity [Not Recovered/Not Resolved]
  - Rales [Unknown]
  - Gait disturbance [Unknown]
  - Memory impairment [Unknown]
  - Cough [Not Recovered/Not Resolved]
  - Facial pain [Unknown]
  - Vomiting [Unknown]
  - Pain [Not Recovered/Not Resolved]

NARRATIVE: CASE EVENT DATE: 201801
